FAERS Safety Report 6676398-0 (Version None)
Quarter: 2010Q2

REPORT INFORMATION
  Report Type: 
  Country: None (occurrence: None)
  Receive Date: 20100412
  Receipt Date: 20100330
  Transmission Date: 20101027
  Serious: Yes (Other)
  Sender: FDA-Public Use
  Company Number: PHHY2010US20506

PATIENT
  Sex: Female

DRUGS (6)
  1. RECLAST [Suspect]
     Dosage: UNK
     Dates: start: 20090401
  2. TRICOR [Concomitant]
     Dosage: UNK
  3. CITRACAL [Concomitant]
     Dosage: UNK
  4. INDERAL [Concomitant]
     Dosage: UNK
  5. ASPIRIN [Concomitant]
     Dosage: UNK
  6. FISH OIL [Concomitant]
     Dosage: UNK

REACTIONS (7)
  - BLADDER REPAIR [None]
  - FEELING ABNORMAL [None]
  - HEADACHE [None]
  - HYSTERECTOMY [None]
  - MALAISE [None]
  - PYREXIA [None]
  - TREMOR [None]
